FAERS Safety Report 6956730-0 (Version None)
Quarter: 2010Q3

REPORT INFORMATION
  Report Type: 
  Country: None (occurrence: None)
  Receive Date: 20100830
  Receipt Date: 20100818
  Transmission Date: 20110219
  Serious: Yes (Other)
  Sender: FDA-Public Use
  Company Number: PHHY2010NL54774

PATIENT
  Sex: Female

DRUGS (2)
  1. ZOMETA [Suspect]
     Dosage: UNK, 4 MG/ 5 ML
     Route: 042
  2. ZOMETA [Suspect]
     Dosage: UNK, 4 MG/ 5 ML
     Route: 042
     Dates: start: 20100722

REACTIONS (1)
  - GENERAL PHYSICAL HEALTH DETERIORATION [None]
